FAERS Safety Report 7874908-9 (Version None)
Quarter: 2011Q4

REPORT INFORMATION
  Report Type: 
  Country: None (occurrence: None)
  Receive Date: 20111031
  Receipt Date: 20111020
  Transmission Date: 20120403
  Serious: Yes (Hospitalization)
  Sender: FDA-Public Use
  Company Number: FR-JNJFOC-20111010231

PATIENT
  Age: 10 Year
  Sex: Male
  Weight: 34.2 kg

DRUGS (5)
  1. POLARAMINE [Concomitant]
     Indication: PREMEDICATION
     Route: 042
     Dates: start: 20110908
  2. HYDROCORTISONE HEMISUCCINATE [Concomitant]
     Indication: PREMEDICATION
     Route: 042
     Dates: start: 20110908
  3. REMICADE [Suspect]
     Indication: CROHN'S DISEASE
     Route: 042
     Dates: start: 20110726
  4. REMICADE [Suspect]
     Route: 042
     Dates: start: 20110809
  5. REMICADE [Suspect]
     Route: 042
     Dates: start: 20110908, end: 20110908

REACTIONS (6)
  - DYSPNOEA [None]
  - VOMITING [None]
  - OXYGEN SATURATION DECREASED [None]
  - RASH [None]
  - RESPIRATORY DISORDER [None]
  - INFUSION RELATED REACTION [None]
